FAERS Safety Report 22274790 (Version 1)
Quarter: 2023Q2

REPORT INFORMATION
  Report Type: Report from Study
  Country: US (occurrence: US)
  Receive Date: 20230502
  Receipt Date: 20230502
  Transmission Date: 20230722
  Serious: Yes (Other)
  Sender: FDA-Public Use
  Company Number: US-SANOFI-01590860

PATIENT

DRUGS (1)
  1. DUPILUMAB [Suspect]
     Active Substance: DUPILUMAB
     Dosage: UNK

REACTIONS (4)
  - Corneal graft rejection [Unknown]
  - Corneal oedema [Unknown]
  - Corneal opacity [Unknown]
  - Corneal neovascularisation [Unknown]
